FAERS Safety Report 25534731 (Version 1)
Quarter: 2025Q3

REPORT INFORMATION
  Report Type: Spontaneous
  Country: US (occurrence: US)
  Receive Date: 20250709
  Receipt Date: 20250709
  Transmission Date: 20251020
  Serious: Yes (Life-Threatening, Hospitalization, Other)
  Sender: PFIZER
  Company Number: US-PFIZER INC-PV202500081694

PATIENT
  Age: 15 Year
  Sex: Male

DRUGS (9)
  1. MILRINONE [Suspect]
     Active Substance: MILRINONE
     Indication: Thrombosis
  2. MILRINONE [Suspect]
     Active Substance: MILRINONE
     Indication: Cerebrovascular accident
  3. FUROSEMIDE [Concomitant]
     Active Substance: FUROSEMIDE
     Indication: Cerebrovascular accident
  4. FUROSEMIDE [Concomitant]
     Active Substance: FUROSEMIDE
     Indication: Thrombosis
  5. HEPARIN SODIUM [Concomitant]
     Active Substance: HEPARIN SODIUM
     Indication: Thrombosis
  6. HEPARIN SODIUM [Concomitant]
     Active Substance: HEPARIN SODIUM
     Indication: Cerebrovascular accident
  7. ASPIRIN [Concomitant]
     Active Substance: ASPIRIN
     Indication: Thrombosis
  8. ASPIRIN [Concomitant]
     Active Substance: ASPIRIN
     Indication: Cerebrovascular accident
  9. KETOCONAZOLE [Concomitant]
     Active Substance: KETOCONAZOLE

REACTIONS (1)
  - Drug ineffective [Unknown]
